FAERS Safety Report 7373619-6 (Version None)
Quarter: 2011Q1

REPORT INFORMATION
  Report Type: 
  Country: None (occurrence: None)
  Receive Date: 20110325
  Receipt Date: 20101007
  Transmission Date: 20110831
  Serious: Yes (Other)
  Sender: FDA-Public Use
  Company Number: US-BAYER-201034911NA

PATIENT
  Sex: Female
  Weight: 99.773 kg

DRUGS (14)
  1. PHENTERMINE [Concomitant]
     Dosage: 37.5 MG/24HR, UNK
  2. YASMIN [Suspect]
     Indication: ACNE
     Dosage: UNK
     Dates: start: 20060201, end: 20060301
  3. ACETAMINOPHEN [Concomitant]
     Dosage: UNK UNK, PRN
  4. IBUPROFEN [Concomitant]
     Dosage: 800 MG, UNK
  5. OCELLA [Suspect]
     Indication: ACNE
  6. RANITIDINE [Concomitant]
     Indication: GOUT
     Dosage: 300 MG, UNK
     Dates: start: 20060101, end: 20100101
  7. CELEXA [Concomitant]
     Indication: DEPRESSION
     Dosage: 20 MG, UNK
     Dates: start: 20090910
  8. YAZ [Suspect]
     Indication: CONTRACEPTION
  9. NSAID'S [Concomitant]
     Dosage: UNK
     Dates: start: 20070101, end: 20090101
  10. YASMIN [Suspect]
     Indication: CONTRACEPTION
  11. HYDROCODONE BITARTRATE [Concomitant]
  12. YAZ [Suspect]
     Indication: ACNE
     Dosage: UNK
     Dates: start: 20080101, end: 20090101
  13. LISINOPRIL [Concomitant]
     Indication: BLOOD PRESSURE ABNORMAL
     Dosage: UNK
     Dates: start: 20090101
  14. CIPROFLOXACIN [Concomitant]
     Dosage: 500 MG, TID

REACTIONS (6)
  - GASTRIC DISORDER [None]
  - CHOLELITHIASIS [None]
  - BLOOD CHOLESTEROL INCREASED [None]
  - CHOLECYSTITIS CHRONIC [None]
  - GALLBLADDER DISORDER [None]
  - HYPERTENSION [None]
